FAERS Safety Report 12045275 (Version 1)
Quarter: 2016Q1

REPORT INFORMATION
  Report Type: Spontaneous
  Country: US (occurrence: US)
  Receive Date: 20160208
  Receipt Date: 20160208
  Transmission Date: 20160526
  Serious: Yes (Other)
  Sender: FDA-Public Use
  Company Number: US-ABBVIE-15P-163-1416195-00

PATIENT
  Sex: Female

DRUGS (1)
  1. HUMIRA [Suspect]
     Active Substance: ADALIMUMAB
     Indication: RHEUMATOID ARTHRITIS
     Route: 065

REACTIONS (10)
  - Device issue [Unknown]
  - Migraine [Unknown]
  - Interstitial lung disease [Unknown]
  - Barrett^s oesophagus [Unknown]
  - Adverse event [Unknown]
  - Stress fracture [Not Recovered/Not Resolved]
  - Sjogren^s syndrome [Unknown]
  - Lung disorder [Unknown]
  - Drug ineffective [Recovered/Resolved with Sequelae]
  - Sinus headache [Unknown]
